FAERS Safety Report 7003682-3 (Version None)
Quarter: 2010Q3

REPORT INFORMATION
  Report Type: 
  Country: None (occurrence: None)
  Receive Date: 20100920
  Receipt Date: 20090427
  Transmission Date: 20110219
  Serious: No
  Sender: FDA-Public Use
  Company Number: US-WYE-H09142609

PATIENT
  Age: 78 Year
  Sex: Female
  Weight: 58.11 kg

DRUGS (12)
  1. PANTOPRAZOLE [Suspect]
     Indication: GASTROOESOPHAGEAL REFLUX DISEASE
     Route: 048
  2. THYROID TAB [Concomitant]
  3. HYDROCHLOROTHIAZIDE [Concomitant]
  4. ZOLPIDEM [Concomitant]
  5. FISH OIL, HYDROGENATED [Concomitant]
  6. MULTI-VITAMINS [Concomitant]
  7. CALCIUM [Concomitant]
  8. ASCORBIC ACID [Concomitant]
  9. MAGNESIUM [Concomitant]
  10. VITAMIN D [Concomitant]
  11. ESTRACE [Concomitant]
  12. ZOLOFT [Concomitant]

REACTIONS (1)
  - COELIAC DISEASE [None]
